FAERS Safety Report 6466576-8 (Version None)
Quarter: 2009Q4

REPORT INFORMATION
  Report Type: 
  Country: None (occurrence: None)
  Receive Date: 20091202
  Receipt Date: 20091123
  Transmission Date: 20100525
  Serious: Yes (Other)
  Sender: FDA-Public Use
  Company Number: US-ASTRAZENECA-2009SE28034

PATIENT
  Age: 54 Year
  Sex: Female
  Weight: 69.4 kg

DRUGS (2)
  1. NEXIUM [Suspect]
     Route: 048
     Dates: start: 20081001
  2. FEMHRT [Concomitant]

REACTIONS (1)
  - THYROID CANCER [None]
